FAERS Safety Report 11889145 (Version 1)
Quarter: 2016Q1

REPORT INFORMATION
  Report Type: Spontaneous
  Country: US (occurrence: None)
  Receive Date: 20160104
  Receipt Date: 20160104
  Transmission Date: 20160526
  Serious: Yes (Disabling)
  Sender: FDA-Public Use
  Company Number: None

PATIENT
  Age: 68 Year
  Sex: Female
  Weight: 64.86 kg

DRUGS (1)
  1. BYSTOLIC [Suspect]
     Active Substance: NEBIVOLOL HYDROCHLORIDE
     Indication: HYPERTENSION
     Dosage: 1 PILL BID
     Route: 048
     Dates: start: 2012, end: 20150921

REACTIONS (5)
  - Product packaging issue [None]
  - Impaired driving ability [None]
  - Gait disturbance [None]
  - Pain [None]
  - Psoriasis [None]
